FAERS Safety Report 8167845-6 (Version None)
Quarter: 2012Q1

REPORT INFORMATION
  Report Type: 
  Country: None (occurrence: None)
  Receive Date: 20120222
  Receipt Date: 20120209
  Transmission Date: 20120608
  Serious: Yes (Death)
  Sender: FDA-Public Use
  Company Number: 2011P1014204

PATIENT
  Age: 58 Year
  Sex: Male
  Weight: 104.3273 kg

DRUGS (19)
  1. MIRTAZAPINE [Concomitant]
  2. FENTANYL [Suspect]
     Indication: CYST
     Dosage: Q3D
     Dates: start: 20110601, end: 20110101
  3. FENTANYL [Suspect]
     Indication: FIBROMYALGIA
     Dosage: Q3D
     Dates: start: 20110601, end: 20110101
  4. FENTANYL [Suspect]
     Indication: SPINAL OPERATION
     Dosage: Q3D
     Dates: start: 20110601, end: 20110101
  5. FENTANYL [Suspect]
     Indication: PAIN
     Dosage: Q3D
     Dates: start: 20110601, end: 20110101
  6. FENTANYL [Suspect]
     Indication: ARTHRITIS
     Dosage: Q3D
     Dates: start: 20110601, end: 20110101
  7. FENTANYL [Suspect]
     Indication: INTERVERTEBRAL DISC DEGENERATION
     Dosage: Q3D
     Dates: start: 20110601, end: 20110101
  8. FENTANYL [Suspect]
     Indication: SCIATICA
     Dosage: Q3D
     Dates: start: 20110601, end: 20110101
  9. FENTANYL [Suspect]
     Indication: INTERVERTEBRAL DISC PROTRUSION
     Dosage: Q3D
     Dates: start: 20110601, end: 20110101
  10. CITALOPRAM HYDROBROMIDE [Concomitant]
  11. FENTANYL [Suspect]
     Indication: INTERVERTEBRAL DISC DEGENERATION
     Dosage: Q3D
     Dates: start: 20110101, end: 20110101
  12. FENTANYL [Suspect]
     Indication: CYST
     Dosage: Q3D
     Dates: start: 20110101, end: 20110101
  13. FENTANYL [Suspect]
     Indication: SPINAL OPERATION
     Dosage: Q3D
     Dates: start: 20110101, end: 20110101
  14. FENTANYL [Suspect]
     Indication: ARTHRITIS
     Dosage: Q3D
     Dates: start: 20110101, end: 20110101
  15. FENTANYL [Suspect]
     Indication: SCIATICA
     Dosage: Q3D
     Dates: start: 20110101, end: 20110101
  16. FENTANYL [Suspect]
     Indication: INTERVERTEBRAL DISC PROTRUSION
     Dosage: Q3D
     Dates: start: 20110101, end: 20110101
  17. FENTANYL [Suspect]
     Indication: BACK PAIN
     Dosage: Q3D
     Dates: start: 20110101, end: 20110101
  18. FENTANYL [Suspect]
     Indication: FIBROMYALGIA
     Dosage: Q3D
     Dates: start: 20110101, end: 20110101
  19. VICODIN [Concomitant]

REACTIONS (3)
  - OVERDOSE [None]
  - ACCIDENTAL DEATH [None]
  - POISONING [None]
